FAERS Safety Report 13361691 (Version 3)
Quarter: 2018Q4

REPORT INFORMATION
  Report Type: Spontaneous
  Country: NO (occurrence: NO)
  Receive Date: 20170323
  Receipt Date: 20181113
  Transmission Date: 20190204
  Serious: Yes (Death, Disabling, Other)
  Sender: FDA-Public Use
  Company Number: NO-ACCORD-049372

PATIENT
  Age: 25 Year
  Sex: Female

DRUGS (3)
  1. METHOTREXATE. [Suspect]
     Active Substance: METHOTREXATE
     Indication: ACUTE LYMPHOCYTIC LEUKAEMIA
     Dosage: GIVEN ACCORDING TO NOPHO PROTOCOL?INITIALLY UNTIL SPINAL FLUID IS BLANK.
     Route: 037
     Dates: start: 20160628, end: 20160918
  2. PREDNISOLONE. [Suspect]
     Active Substance: PREDNISOLONE
     Indication: ACUTE LYMPHOCYTIC LEUKAEMIA
     Dosage: GIVEN ACCORDING TO NOPHO PROTOCOL?INITIALLY UNTIL SPINAL FLUID IS BLANK
     Route: 037
     Dates: start: 20160628, end: 201609
  3. CYTARABINE/CYTARABINE HYDROCHLORIDE/CYTARABINE OCFOSFATE [Suspect]
     Active Substance: CYTARABINE
     Indication: ACUTE LYMPHOCYTIC LEUKAEMIA
     Dosage: INITIALLY UNTIL SPINAL FLUID IS BLANK.??NOPHO PROTOCOL
     Route: 037
     Dates: start: 20160628, end: 201609

REACTIONS (9)
  - Leukoencephalopathy [Fatal]
  - Motor dysfunction [Not Recovered/Not Resolved]
  - Paraplegia [Not Recovered/Not Resolved]
  - Toxicity to various agents [Not Recovered/Not Resolved]
  - Myelopathy [Fatal]
  - Neoplasm recurrence [Fatal]
  - Neurogenic bladder [Not Recovered/Not Resolved]
  - Anal sphincter atony [Not Recovered/Not Resolved]
  - Myelomalacia [Not Recovered/Not Resolved]

NARRATIVE: CASE EVENT DATE: 201608
